FAERS Safety Report 5955504-7 (Version None)
Quarter: 2008Q4

REPORT INFORMATION
  Report Type: 
  Country: None (occurrence: None)
  Receive Date: 20081112
  Receipt Date: 20081030
  Transmission Date: 20090506
  Serious: Yes (Hospitalization)
  Sender: FDA-Public Use
  Company Number: 1000001597

PATIENT
  Age: 90 Year
  Sex: Female

DRUGS (3)
  1. MEMANTINE HCL [Suspect]
     Dosage: 20 MG (10 MG, 2 IN 1 D), ORAL
     Route: 048
     Dates: start: 20050101, end: 20080101
  2. MEMANTINE HCL [Suspect]
     Dosage: 10 MG (10 MG, 1 IN 1 D), ORAL,20 MG (10 MG, 2 IN 1 D), ORAL
     Route: 048
     Dates: start: 20080101, end: 20081006
  3. MEMANTINE HCL [Suspect]
     Dosage: 10 MG (10 MG, 1 IN 1 D), ORAL,20 MG (10 MG, 2 IN 1 D), ORAL
     Route: 048
     Dates: start: 20081007

REACTIONS (5)
  - AGGRESSION [None]
  - AGITATION [None]
  - CIRCADIAN RHYTHM SLEEP DISORDER [None]
  - DELIRIUM [None]
  - SOMNOLENCE [None]
